FAERS Safety Report 20430630 (Version 2)
Quarter: 2022Q1

REPORT INFORMATION
  Report Type: Report from Study
  Country: FR (occurrence: FR)
  Receive Date: 20220204
  Receipt Date: 20220308
  Transmission Date: 20220424
  Serious: Yes (Hospitalization)
  Sender: FDA-Public Use
  Company Number: FR-SERVIER-S20012931

PATIENT

DRUGS (9)
  1. PEGASPARGASE [Suspect]
     Active Substance: PEGASPARGASE
     Indication: Acute lymphocytic leukaemia
     Dosage: 1250 IU, ON D12 AND D26
     Route: 042
     Dates: start: 20201017, end: 20201031
  2. PREDNISOLONE [Suspect]
     Active Substance: PREDNISOLONE
     Indication: Acute lymphocytic leukaemia
     Dosage: 60 MG,  ON D1 TO D7
     Route: 048
     Dates: start: 20201006, end: 20201012
  3. PREDNISOLONE [Suspect]
     Active Substance: PREDNISOLONE
     Dosage: 60 MG, ON  D8 TO D28
     Route: 048
     Dates: start: 20201013, end: 20201102
  4. PREDNISONE [Suspect]
     Active Substance: PREDNISONE
     Indication: Acute lymphocytic leukaemia
     Dosage: 60 MG, ON D1 AND D8
     Route: 048
     Dates: start: 20201006, end: 20201012
  5. METHOTREXATE [Suspect]
     Active Substance: METHOTREXATE
     Indication: Acute lymphocytic leukaemia
     Dosage: 12 MG, ON D1, D9, D13, D18, AND D24
     Route: 037
     Dates: start: 20201006, end: 20201029
  6. CYTARABINE [Suspect]
     Active Substance: CYTARABINE
     Indication: Acute lymphocytic leukaemia
     Dosage: 30 MG, ON D9, D13, D18, AND D24
     Route: 037
     Dates: start: 20201014, end: 20201029
  7. HYDROCORTISONE [Suspect]
     Active Substance: HYDROCORTISONE
     Indication: Acute lymphocytic leukaemia
     Dosage: 15 MG, ON D9, D13, D18, AND D24
     Route: 037
     Dates: start: 20201014, end: 20201029
  8. VINCRISTINE SULFATE [Suspect]
     Active Substance: VINCRISTINE SULFATE
     Indication: Acute lymphocytic leukaemia
     Dosage: 1.5 MG, ON D8, D15, D22, AND D29
     Route: 042
     Dates: start: 20201013, end: 20201103
  9. DAUNORUBICIN HYDROCHLORIDE [Suspect]
     Active Substance: DAUNORUBICIN HYDROCHLORIDE
     Indication: Acute lymphocytic leukaemia
     Dosage: 30 MG, ON D8, D15, D22, AND D29
     Route: 042
     Dates: start: 20201015, end: 20201103

REACTIONS (2)
  - COVID-19 [Recovered/Resolved]
  - Febrile bone marrow aplasia [Recovered/Resolved]

NARRATIVE: CASE EVENT DATE: 20201029
